FAERS Safety Report 5661549-7 (Version None)
Quarter: 2008Q1

REPORT INFORMATION
  Report Type: 
  Country: None (occurrence: None)
  Receive Date: 20080312
  Receipt Date: 20080229
  Transmission Date: 20080703
  Serious: Yes (Death)
  Sender: FDA-Public Use
  Company Number: PHBS2008DE02912

PATIENT
  Age: 25 Year
  Sex: Male

DRUGS (3)
  1. SANDIMMUNE [Suspect]
     Indication: LUNG TRANSPLANT
  2. CELLCEPT [Concomitant]
     Indication: LUNG TRANSPLANT
  3. DECORTIN-H [Concomitant]
     Indication: LUNG TRANSPLANT

REACTIONS (1)
  - ROAD TRAFFIC ACCIDENT [None]
